FAERS Safety Report 4731635-4 (Version None)
Quarter: 2005Q3

REPORT INFORMATION
  Report Type: 
  Country: None (occurrence: None)
  Receive Date: 20050719
  Receipt Date: 20050214
  Transmission Date: 20060218
  Serious: Yes (Hospitalization)
  Sender: FDA-Public Use
  Company Number: 2005BI003487

PATIENT
  Age: 67 Year
  Sex: Female
  Weight: 52.1637 kg

DRUGS (2)
  1. AVONEX [Suspect]
     Indication: MULTIPLE SCLEROSIS
     Dosage: 30 UG;QW;IM
     Route: 030
     Dates: start: 19990101
  2. VITAMIN SUPPLEMENTS [Concomitant]

REACTIONS (6)
  - DYSPNOEA [None]
  - INFLUENZA [None]
  - MULTIPLE SCLEROSIS RELAPSE [None]
  - NAUSEA [None]
  - SLEEP DISORDER [None]
  - STRESS [None]
